FAERS Safety Report 14562010 (Version 2)
Quarter: 2018Q2

REPORT INFORMATION
  Report Type: Spontaneous
  Country: FR (occurrence: FR)
  Receive Date: 20180222
  Receipt Date: 20180402
  Transmission Date: 20180711
  Serious: Yes (Death, Hospitalization)
  Sender: FDA-Public Use
  Company Number: FR-JNJFOC-20180228526

PATIENT
  Sex: Male

DRUGS (1)
  1. ZYTIGA [Suspect]
     Active Substance: ABIRATERONE ACETATE
     Indication: PROSTATE CANCER
     Dosage: IN THE EVENING FOR THREE YEARS.
     Route: 048
     Dates: end: 20171223

REACTIONS (3)
  - Gastroenteritis [Fatal]
  - Depression [Fatal]
  - Hospitalisation [Unknown]
